FAERS Safety Report 18125403 (Version 1)
Quarter: 2020Q3

REPORT INFORMATION
  Report Type: Spontaneous
  Country: JP (occurrence: JP)
  Receive Date: 20200807
  Receipt Date: 20200807
  Transmission Date: 20201103
  Serious: Yes (Other)
  Sender: FDA-Public Use
  Company Number: JP-ASTRAZENECA-2020SE98978

PATIENT
  Sex: Female

DRUGS (1)
  1. FASENRA [Suspect]
     Active Substance: BENRALIZUMAB
     Indication: ASTHMA
     Dosage: DOSE UNKNOWN
     Route: 058

REACTIONS (6)
  - Empyema [Unknown]
  - Nasal polyps [Unknown]
  - Eosinophilic otitis media [Unknown]
  - Gastroenteritis eosinophilic [Unknown]
  - Asthma [Unknown]
  - Multiple allergies [Unknown]
